FAERS Safety Report 7493532-3 (Version None)
Quarter: 2011Q2

REPORT INFORMATION
  Report Type: 
  Country: None (occurrence: None)
  Receive Date: 20110520
  Receipt Date: 20110513
  Transmission Date: 20111010
  Serious: Yes (Other)
  Sender: FDA-Public Use
  Company Number: JP-PFIZER INC-2011104032

PATIENT
  Age: 51 Year
  Sex: Female

DRUGS (2)
  1. MEDROL [Suspect]
     Dosage: 4 MG, 2X/DAY
     Route: 048
     Dates: start: 20110507, end: 20110508
  2. ALLEGRA [Suspect]
     Dosage: 60 MG, 1X/DAY
     Route: 048
     Dates: start: 20110507, end: 20110508

REACTIONS (1)
  - TOXIC SKIN ERUPTION [None]
